FAERS Safety Report 22226917 (Version 1)
Quarter: 2023Q2

REPORT INFORMATION
  Report Type: Report from Study
  Country: US (occurrence: US)
  Receive Date: 20230419
  Receipt Date: 20230419
  Transmission Date: 20230721
  Serious: Yes (Hospitalization, Other)
  Sender: FDA-Public Use
  Company Number: US-ABBVIE-4732559

PATIENT
  Age: 63 Year
  Sex: Female

DRUGS (1)
  1. CREON [Suspect]
     Active Substance: PANCRELIPASE AMYLASE\PANCRELIPASE LIPASE\PANCRELIPASE PROTEASE
     Indication: Pancreatitis
     Dosage: FORM STRENGTH: 24000 IU (INTERNATIONAL UNIT)
     Route: 048
     Dates: start: 2019, end: 202303

REACTIONS (6)
  - Pancreatitis acute [Recovered/Resolved]
  - Shock [Unknown]
  - Feeling cold [Unknown]
  - Pain [Recovered/Resolved]
  - Hypertension [Not Recovered/Not Resolved]
  - Hyperhidrosis [Unknown]

NARRATIVE: CASE EVENT DATE: 20230319
